FAERS Safety Report 18044219 (Version 1)
Quarter: 2020Q3

REPORT INFORMATION
  Report Type: Spontaneous
  Country: FR (occurrence: FR)
  Receive Date: 20200720
  Receipt Date: 20200720
  Transmission Date: 20201103
  Serious: Yes (Hospitalization)
  Sender: FDA-Public Use
  Company Number: NVSC2020FR201908

PATIENT
  Age: 28 Year
  Sex: Female

DRUGS (5)
  1. TEGRETOL [Suspect]
     Active Substance: CARBAMAZEPINE
     Indication: EPILEPSY
     Dosage: 2 DF, QD
     Route: 048
     Dates: start: 201707, end: 20200628
  2. LEPTICUR [Concomitant]
     Active Substance: TROPATEPINE HYDROCHLORIDE
     Indication: PRODUCT USED FOR UNKNOWN INDICATION
     Dosage: 3 DF, QD
     Route: 048
     Dates: start: 201303, end: 20200628
  3. ZOPICLONE [Concomitant]
     Active Substance: ZOPICLONE
     Indication: PRODUCT USED FOR UNKNOWN INDICATION
     Dosage: 3.75 MG
     Route: 048
     Dates: end: 20200628
  4. TERCIAN [Concomitant]
     Active Substance: CYAMEMAZINE
     Indication: AGITATION
     Dosage: 3 DF, QD
     Route: 048
     Dates: start: 200902, end: 20200628
  5. CATAPRESSAN [Concomitant]
     Active Substance: CLONIDINE
     Indication: DYSKINESIA
     Dosage: 0.04 MG, QD
     Route: 048
     Dates: start: 201802, end: 20200628

REACTIONS (1)
  - Coma [Recovered/Resolved]

NARRATIVE: CASE EVENT DATE: 20200628
